FAERS Safety Report 23425121 (Version 1)
Quarter: 2024Q1

REPORT INFORMATION
  Report Type: Spontaneous
  Country: US (occurrence: US)
  Receive Date: 20240121
  Receipt Date: 20240121
  Transmission Date: 20240410
  Serious: Yes (Hospitalization)
  Sender: FDA-Public Use
  Company Number: US-BAUSCH-BL-2020-034069

PATIENT
  Age: 67 Year
  Sex: Female
  Weight: 77.18 kg

DRUGS (3)
  1. LACRISERT [Suspect]
     Active Substance: HYDROXYPROPYL CELLULOSE
     Indication: Dry eye
     Dosage: USING FOR PAST 28 YEARS 3 TIMES A DAY
     Route: 047
     Dates: end: 1993
  2. LACRISERT [Suspect]
     Active Substance: HYDROXYPROPYL CELLULOSE
     Indication: Corneal abrasion
     Route: 047
     Dates: start: 202012
  3. LACRISERT [Suspect]
     Active Substance: HYDROXYPROPYL CELLULOSE
     Indication: Eye ulcer

REACTIONS (10)
  - Presyncope [Unknown]
  - Fall [Unknown]
  - Head injury [Unknown]
  - Eye pain [Not Recovered/Not Resolved]
  - Eye ulcer [Not Recovered/Not Resolved]
  - Dry eye [Not Recovered/Not Resolved]
  - Corneal abrasion [Unknown]
  - Vision blurred [Unknown]
  - Product availability issue [Unknown]
  - Therapy interrupted [Unknown]

NARRATIVE: CASE EVENT DATE: 20210101
